FAERS Safety Report 10549920 (Version 1)
Quarter: 2014Q4

REPORT INFORMATION
  Report Type: Spontaneous
  Country: US (occurrence: None)
  Receive Date: 20141020
  Receipt Date: 20141020
  Transmission Date: 20150529
  Serious: No
  Sender: FDA-Public Use
  Company Number: AEGR000730

PATIENT
  Age: 33 Year
  Sex: Male
  Weight: 74.4 kg

DRUGS (6)
  1. EZETIMIBE. [Concomitant]
     Active Substance: EZETIMIBE
  2. NIACIN. [Concomitant]
     Active Substance: NIACIN
  3. COLESEVELAM [Concomitant]
     Active Substance: COLESEVELAM
  4. ROSUVASTATIN [Concomitant]
     Active Substance: ROSUVASTATIN
  5. JUXTAPID [Suspect]
     Active Substance: LOMITAPIDE MESYLATE
     Indication: TYPE IIA HYPERLIPIDAEMIA
     Dates: start: 20131120, end: 20131204
  6. ASPIRIN (ACETYLSALICYLIC ACID) [Concomitant]
     Active Substance: ASPIRIN

REACTIONS (1)
  - Therapeutic response unexpected [None]
